FAERS Safety Report 24546373 (Version 1)
Quarter: 2024Q4

REPORT INFORMATION
  Report Type: Other
  Country: US (occurrence: US)
  Receive Date: 20241024
  Receipt Date: 20241024
  Transmission Date: 20250115
  Serious: Yes (Hospitalization)
  Sender: ACI HEALTHCARE
  Company Number: US-ACI HealthCare Limited-2163327

PATIENT
  Age: 29 Year
  Sex: Male

DRUGS (9)
  1. SERTRALINE HYDROCHLORIDE [Suspect]
     Active Substance: SERTRALINE HYDROCHLORIDE
     Indication: Autism spectrum disorder
  2. BUSPIRONE [Suspect]
     Active Substance: BUSPIRONE HYDROCHLORIDE
  3. NALTREXONE HYDROCHLORIDE [Concomitant]
     Active Substance: NALTREXONE HYDROCHLORIDE
  4. CLONAZEPAM [Concomitant]
     Active Substance: CLONAZEPAM
  5. VALPROATE SODIUM [Concomitant]
     Active Substance: VALPROATE SODIUM
  6. OLANZAPINE [Concomitant]
     Active Substance: OLANZAPINE
  7. ARIPIPRAZOLE [Concomitant]
     Active Substance: ARIPIPRAZOLE
  8. RISPERIDONE [Concomitant]
     Active Substance: RISPERIDONE
  9. LORAZEPAM [Concomitant]
     Active Substance: LORAZEPAM

REACTIONS (3)
  - Disinhibition [Unknown]
  - Product use in unapproved indication [Unknown]
  - Aggression [Unknown]
